FAERS Safety Report 20351767 (Version 4)
Quarter: 2023Q4

REPORT INFORMATION
  Report Type: Spontaneous
  Country: JP (occurrence: JP)
  Receive Date: 20220119
  Receipt Date: 20231220
  Transmission Date: 20240110
  Serious: Yes (Death, Hospitalization)
  Sender: FDA-Public Use
  Company Number: JP-JNJFOC-20220132963

PATIENT
  Age: 10 Decade
  Sex: Male

DRUGS (4)
  1. ERLEADA [Suspect]
     Active Substance: APALUTAMIDE
     Indication: Prostate cancer
     Route: 048
     Dates: start: 20191030
  2. ERLEADA [Suspect]
     Active Substance: APALUTAMIDE
     Indication: Prostate cancer
     Route: 048
     Dates: end: 20211226
  3. ERLEADA [Suspect]
     Active Substance: APALUTAMIDE
     Route: 048
     Dates: start: 20211227, end: 20220104
  4. VIBEGRON [Concomitant]
     Active Substance: VIBEGRON
     Indication: Hypertonic bladder
     Route: 048
     Dates: start: 202111, end: 20220104

REACTIONS (4)
  - Pneumonia [Fatal]
  - Malaise [Unknown]
  - Prescribed underdose [Unknown]
  - Off label use [Unknown]

NARRATIVE: CASE EVENT DATE: 20211227
